FAERS Safety Report 4390044-0 (Version None)
Quarter: 2004Q2

REPORT INFORMATION
  Report Type: 
  Country: None (occurrence: None)
  Receive Date: 20040630
  Receipt Date: 20040614
  Transmission Date: 20050107
  Serious: Yes (Other)
  Sender: FDA-Public Use
  Company Number: CA-JNJFOC-2004063807

PATIENT
  Age: 53 Year
  Sex: Female
  Weight: 88 kg

DRUGS (2)
  1. REMICADE [Suspect]
     Indication: RHEUMATOID ARTHRITIS
     Dosage: 300 MG, INTRAVENOUS; 1 IN 8 WEEK, INTRAVENOUS
     Dates: start: 20031201
  2. REMICADE [Suspect]
     Indication: RHEUMATOID ARTHRITIS
     Dosage: 300 MG, INTRAVENOUS; 1 IN 8 WEEK, INTRAVENOUS
     Dates: start: 20040401

REACTIONS (3)
  - DISEASE RECURRENCE [None]
  - KNEE ARTHROPLASTY [None]
  - URINARY TRACT INFECTION [None]
